FAERS Safety Report 24727377 (Version 1)
Quarter: 2024Q4

REPORT INFORMATION
  Report Type: Spontaneous
  Country: JP (occurrence: None)
  Receive Date: 20241212
  Receipt Date: 20241212
  Transmission Date: 20250115
  Serious: Yes (Other)
  Sender: UMEDICA LABS
  Company Number: JP-Umedica-000621

PATIENT
  Age: 61 Year
  Sex: Female

DRUGS (4)
  1. OLMESARTAN MEDOXOMIL [Suspect]
     Active Substance: OLMESARTAN MEDOXOMIL
     Indication: Hypertension
     Route: 048
  2. URSODIOL [Concomitant]
     Active Substance: URSODIOL
     Indication: Metabolic dysfunction-associated liver disease
  3. VONOPRAZAN [Concomitant]
     Active Substance: VONOPRAZAN
     Route: 048
  4. CALCIUM POLYCARBOPHIL [Concomitant]
     Active Substance: CALCIUM POLYCARBOPHIL

REACTIONS (9)
  - Gastritis [Recovering/Resolving]
  - Weight decreased [Recovering/Resolving]
  - Decreased appetite [Unknown]
  - Sprue-like enteropathy [Recovering/Resolving]
  - Gastric mucosal hypertrophy [Recovering/Resolving]
  - Skin mass [Unknown]
  - Condition aggravated [Recovering/Resolving]
  - Intestinal villi atrophy [Unknown]
  - Diarrhoea [Recovering/Resolving]
